FAERS Safety Report 8270977-5 (Version None)
Quarter: 2012Q2

REPORT INFORMATION
  Report Type: 
  Country: None (occurrence: None)
  Receive Date: 20120410
  Receipt Date: 20120328
  Transmission Date: 20120825
  Serious: Yes (Hospitalization)
  Sender: FDA-Public Use
  Company Number: US-ELI_LILLY_AND_COMPANY-US201109007883

PATIENT
  Sex: Male

DRUGS (27)
  1. BUPROPION HCL [Concomitant]
  2. LITHIUM CARBONATE [Concomitant]
  3. VALACICLOVIR [Concomitant]
  4. ERYTHROMYCIN [Concomitant]
  5. ZYPREXA [Suspect]
     Indication: BIPOLAR DISORDER
     Dosage: 10 MG, QD
     Dates: start: 20100805, end: 20101024
  6. LYRICA [Concomitant]
  7. FISH OIL [Concomitant]
  8. FORTEO [Suspect]
     Indication: OSTEOPOROSIS
     Dosage: 20 UG, QD
     Route: 065
     Dates: start: 20110829
  9. DIVALPROEX SODIUM [Concomitant]
  10. KETAMINE HCL [Concomitant]
  11. CELEBREX [Concomitant]
  12. MULTI-VITAMIN [Concomitant]
  13. CLONAZEPAM [Concomitant]
  14. HYDROXYZINE PAMOATE [Concomitant]
  15. ROZEREM [Concomitant]
  16. TRAZODONE HCL [Concomitant]
  17. GABAPENTIN [Concomitant]
  18. CYCLOBENZAPRINE [Concomitant]
  19. VOLTAREN [Concomitant]
  20. TRUVADA [Concomitant]
  21. BACLOFEN [Concomitant]
  22. KETOPROFEN [Concomitant]
  23. ZYPREXA [Suspect]
     Dosage: 15 MG, QD
     Dates: start: 20101025
  24. KALETRA [Concomitant]
  25. TRAMADOL HCL [Concomitant]
  26. CALCIUM CARBONATE [Concomitant]
  27. FOLIC ACID [Concomitant]

REACTIONS (3)
  - PNEUMONIA [None]
  - MEMORY IMPAIRMENT [None]
  - NASOPHARYNGITIS [None]
